FAERS Safety Report 12217917 (Version 1)
Quarter: 2016Q1

REPORT INFORMATION
  Report Type: Spontaneous
  Country: US (occurrence: US)
  Receive Date: 20160329
  Receipt Date: 20160329
  Transmission Date: 20160526
  Serious: No
  Sender: FDA-Public Use
  Company Number: US-BAUSCH-BL-2016-000316

PATIENT
  Sex: Male
  Weight: 74.46 kg

DRUGS (3)
  1. JUBLIA [Suspect]
     Active Substance: EFINACONAZOLE
     Indication: ONYCHOMYCOSIS
     Route: 061
     Dates: start: 201509, end: 201601
  2. JUBLIA [Suspect]
     Active Substance: EFINACONAZOLE
     Route: 061
     Dates: start: 201512, end: 201601
  3. LOVASTATIN. [Concomitant]
     Active Substance: LOVASTATIN
     Indication: BLOOD CHOLESTEROL INCREASED
     Route: 048
     Dates: start: 2006

REACTIONS (4)
  - Drug ineffective [Unknown]
  - Rash erythematous [Not Recovered/Not Resolved]
  - Nail discolouration [Not Recovered/Not Resolved]
  - Rash pruritic [Not Recovered/Not Resolved]

NARRATIVE: CASE EVENT DATE: 2015
